FAERS Safety Report 9990729 (Version 1)
Quarter: 2014Q1

REPORT INFORMATION
  Report Type: Report from Study
  Country: US (occurrence: US)
  Receive Date: 20140310
  Receipt Date: 20140310
  Transmission Date: 20141002
  Serious: No
  Sender: FDA-Public Use
  Company Number: US-ABBVIE-13P-163-1129099-00

PATIENT
  Age: 62 Year
  Sex: Female
  Weight: 40.86 kg

DRUGS (14)
  1. HUMIRA [Suspect]
     Indication: CROHN^S DISEASE
     Dates: start: 201307
  2. PENTASA [Concomitant]
     Indication: CROHN^S DISEASE
  3. PREDNISONE [Concomitant]
     Indication: CROHN^S DISEASE
  4. REQUIP [Concomitant]
     Indication: RESTLESS LEGS SYNDROME
  5. REMERON [Concomitant]
     Indication: DEPRESSION
  6. VISTARIL [Concomitant]
     Indication: PRODUCT USED FOR UNKNOWN INDICATION
  7. ZOLOFT [Concomitant]
     Indication: DEPRESSION
  8. TRAZADONE [Concomitant]
     Indication: DEPRESSION
  9. FOLIC ACID [Concomitant]
     Indication: ANXIETY
  10. BENADRYL [Concomitant]
     Indication: NASAL CONGESTION
  11. SLOW MAG [Concomitant]
     Indication: MAGNESIUM DEFICIENCY
  12. VITAMIN D3 [Concomitant]
     Indication: HYPOVITAMINOSIS
  13. VITAMIN B12 [Concomitant]
     Indication: VITAMIN SUPPLEMENTATION
     Route: 050
  14. LEVOTHYROXINE [Concomitant]
     Indication: THYROID DISORDER

REACTIONS (2)
  - Drug dose omission [Unknown]
  - Injection site pain [Not Recovered/Not Resolved]
